FAERS Safety Report 14873923 (Version 1)
Quarter: 2018Q2

REPORT INFORMATION
  Report Type: Spontaneous
  Country: DE (occurrence: DE)
  Receive Date: 20180510
  Receipt Date: 20180510
  Transmission Date: 20180711
  Serious: Yes (Disabling, Other)
  Sender: FDA-Public Use
  Company Number: PHHY2018DE004375

PATIENT
  Age: 54 Year
  Sex: Female

DRUGS (1)
  1. OFLOXACIN. [Suspect]
     Active Substance: OFLOXACIN
     Indication: ABDOMINAL ABSCESS
     Dosage: UNK
     Route: 048

REACTIONS (10)
  - Gait inability [Not Recovered/Not Resolved]
  - Musculoskeletal stiffness [Not Recovered/Not Resolved]
  - Depression [Unknown]
  - Tendon rupture [Not Recovered/Not Resolved]
  - Suicidal ideation [Unknown]
  - Swelling [Not Recovered/Not Resolved]
  - Pain [Not Recovered/Not Resolved]
  - Tendon rupture [Recovered/Resolved]
  - Aortic aneurysm [Unknown]
  - Memory impairment [Unknown]

NARRATIVE: CASE EVENT DATE: 201306
